FAERS Safety Report 21977931 (Version 2)
Quarter: 2023Q2

REPORT INFORMATION
  Report Type: Report from Study
  Country: US (occurrence: US)
  Receive Date: 20230210
  Receipt Date: 20230518
  Transmission Date: 20230721
  Serious: Yes (Death, Other)
  Sender: FDA-Public Use
  Company Number: US-JAZZ-2023-US-003209

PATIENT
  Age: 76 Year
  Sex: Female

DRUGS (2)
  1. XYREM [Suspect]
     Active Substance: SODIUM OXYBATE
     Indication: Narcolepsy
  2. XYREM [Suspect]
     Active Substance: SODIUM OXYBATE
     Indication: Cataplexy

REACTIONS (1)
  - Death [Fatal]

NARRATIVE: CASE EVENT DATE: 20230130
